FAERS Safety Report 5731785-X (Version None)
Quarter: 2008Q2

REPORT INFORMATION
  Report Type: 
  Country: None (occurrence: None)
  Receive Date: 20080508
  Receipt Date: 20080428
  Transmission Date: 20081010
  Serious: Yes (Hospitalization, Other)
  Sender: FDA-Public Use
  Company Number: GB-ROCHE-561446

PATIENT

DRUGS (2)
  1. PEGASYS [Suspect]
     Indication: HEPATITIS C
     Route: 065
     Dates: start: 20070601
  2. UNSPECIFIED DRUG [Suspect]
     Route: 065

REACTIONS (2)
  - ADVERSE DRUG REACTION [None]
  - TYPE 1 DIABETES MELLITUS [None]
